FAERS Safety Report 20848185 (Version 1)
Quarter: 2022Q2

REPORT INFORMATION
  Report Type: Spontaneous
  Country: US (occurrence: US)
  Receive Date: 20220519
  Receipt Date: 20220519
  Transmission Date: 20220720
  Serious: No
  Sender: FDA-Public Use
  Company Number: US-009507513-2205USA001120

PATIENT
  Age: 71 Year
  Sex: Female

DRUGS (2)
  1. INVANZ [Suspect]
     Active Substance: ERTAPENEM SODIUM
     Indication: Extradural abscess
     Dosage: 1 GRAM DAILY FOR AT LEAST EIGHT WEEKS
     Route: 042
  2. INVANZ [Suspect]
     Active Substance: ERTAPENEM SODIUM
     Indication: Capnocytophaga infection

REACTIONS (2)
  - Product use in unapproved indication [Unknown]
  - Product use issue [Unknown]
